FAERS Safety Report 11870634 (Version 2)
Quarter: 2016Q4

REPORT INFORMATION
  Report Type: Spontaneous
  Country: US (occurrence: US)
  Receive Date: 20151228
  Receipt Date: 20161219
  Transmission Date: 20170206
  Serious: Yes (Other)
  Sender: FDA-Public Use
  Company Number: US-SANOFI-AVENTIS-2012SA018065

PATIENT
  Age: 65 Year
  Sex: Male
  Weight: 135.1 kg

DRUGS (29)
  1. PLAVIX [Suspect]
     Active Substance: CLOPIDOGREL BISULFATE
     Indication: CARDIAC DISORDER
     Route: 065
  2. SIMVASTATIN. [Concomitant]
     Active Substance: SIMVASTATIN
     Route: 048
  3. DILAUDID [Concomitant]
     Active Substance: HYDROMORPHONE HYDROCHLORIDE
  4. PREDNISONE. [Concomitant]
     Active Substance: PREDNISONE
  5. METOLAZONE. [Concomitant]
     Active Substance: METOLAZONE
     Dosage: 2.5 TO 5 MG A DAY
  6. CALCITRIOL. [Concomitant]
     Active Substance: CALCITRIOL
  7. IRON SULFATE [Concomitant]
     Active Substance: FERROUS SULFATE ANHYDROUS
  8. PROTONIX [Concomitant]
     Active Substance: PANTOPRAZOLE SODIUM
  9. VALIUM [Concomitant]
     Active Substance: DIAZEPAM
  10. PENICILLIN [Concomitant]
     Active Substance: PENICILLIN
  11. ACTOS [Concomitant]
     Active Substance: PIOGLITAZONE HYDROCHLORIDE
     Indication: DIABETES MELLITUS
  12. LOVASTATIN. [Concomitant]
     Active Substance: LOVASTATIN
     Indication: BLOOD CHOLESTEROL
  13. METFORMIN [Concomitant]
     Active Substance: METFORMIN HYDROCHLORIDE
     Indication: DIABETES MELLITUS
  14. POTASSIUM [Concomitant]
     Active Substance: POTASSIUM
     Indication: DIABETES MELLITUS
  15. TORADOL [Concomitant]
     Active Substance: KETOROLAC TROMETHAMINE
  16. METAMUCIL [Concomitant]
     Active Substance: PLANTAGO SEED
  17. ASPIRIN. [Suspect]
     Active Substance: ASPIRIN
     Route: 065
     Dates: start: 200701
  18. LISINOPRIL. [Concomitant]
     Active Substance: LISINOPRIL
     Route: 048
  19. ASPIRIN. [Concomitant]
     Active Substance: ASPIRIN
     Dates: start: 20141201
  20. GLUCOPHAGE [Concomitant]
     Active Substance: METFORMIN HYDROCHLORIDE
     Indication: DIABETES MELLITUS
  21. LANTUS [Concomitant]
     Active Substance: INSULIN GLARGINE
     Dosage: DOSE:65 UNIT(S)
  22. INSULIN [Concomitant]
     Active Substance: INSULIN NOS
     Indication: HYPERGLYCAEMIA
     Dosage: 50 UNITS EVERY AM
  23. LASIX [Concomitant]
     Active Substance: FUROSEMIDE
     Route: 048
  24. WARFARIN [Concomitant]
     Active Substance: WARFARIN
     Dates: start: 2014
  25. VICODIN [Concomitant]
     Active Substance: ACETAMINOPHEN\HYDROCODONE BITARTRATE
     Indication: PAIN
     Route: 048
  26. PLAVIX [Suspect]
     Active Substance: CLOPIDOGREL BISULFATE
     Indication: CARDIAC DISORDER
     Route: 048
     Dates: start: 20070101, end: 20111231
  27. FLONASE [Concomitant]
     Active Substance: FLUTICASONE PROPIONATE
     Dosage: AS NEEDED
  28. REGLAN [Concomitant]
     Active Substance: METOCLOPRAMIDE HYDROCHLORIDE
  29. ATENOLOL. [Concomitant]
     Active Substance: ATENOLOL
     Indication: CARDIAC DISORDER

REACTIONS (3)
  - Thrombotic thrombocytopenic purpura [Unknown]
  - Gastrointestinal haemorrhage [Unknown]
  - Anaemia [Not Recovered/Not Resolved]

NARRATIVE: CASE EVENT DATE: 20101226
